FAERS Safety Report 10094177 (Version 4)
Quarter: 2014Q2

REPORT INFORMATION
  Report Type: Spontaneous
  Country: IT (occurrence: IT)
  Receive Date: 20140422
  Receipt Date: 20140519
  Transmission Date: 20141212
  Serious: Yes (Other)
  Sender: FDA-Public Use
  Company Number: IT-RANBAXY-2014RR-79796

PATIENT
  Age: 32 Year
  Sex: Male

DRUGS (2)
  1. AMOXICILLIN/CLAVULANIC ACID [Suspect]
     Indication: PHARYNGITIS
     Dosage: 1 G, BID
     Route: 065
  2. BETAMETASONE [Concomitant]
     Indication: PHARYNGITIS
     Dosage: 1 MG, DAILY
     Route: 065

REACTIONS (1)
  - Acute generalised exanthematous pustulosis [Recovered/Resolved]
